FAERS Safety Report 4601431-7 (Version None)
Quarter: 2005Q1

REPORT INFORMATION
  Report Type: 
  Country: None (occurrence: None)
  Receive Date: 20050308
  Receipt Date: 20050223
  Transmission Date: 20050727
  Serious: Yes (Other)
  Sender: FDA-Public Use
  Company Number: US-GLAXOSMITHKLINE-A0546846A

PATIENT
  Age: 78 Year
  Sex: Male

DRUGS (4)
  1. CITRUCEL SUGAR-FREE SUSPENSION ORANGE [Suspect]
     Indication: GASTROINTESTINAL DISORDER
     Route: 048
  2. LIPITOR [Concomitant]
  3. HYZAAR [Concomitant]
  4. ZYLOPRIM [Concomitant]

REACTIONS (3)
  - CEREBROVASCULAR ACCIDENT [None]
  - NAUSEA [None]
  - WEIGHT DECREASED [None]
